FAERS Safety Report 4512419-9 (Version None)
Quarter: 2004Q4

REPORT INFORMATION
  Report Type: 
  Country: None (occurrence: None)
  Receive Date: 20041123
  Receipt Date: 20041109
  Transmission Date: 20050328
  Serious: Yes (Other)
  Sender: FDA-Public Use
  Company Number: A0533867A

PATIENT
  Sex: Male

DRUGS (1)
  1. NICORETTE [Suspect]
     Dosage: 4 MG/ TRANSBUCCAL

REACTIONS (1)
  - DRUG DEPENDENCE [None]
